FAERS Safety Report 4511123-0 (Version None)
Quarter: 2004Q4

REPORT INFORMATION
  Report Type: 
  Country: None (occurrence: None)
  Receive Date: 20041012
  Receipt Date: 20040823
  Transmission Date: 20050328
  Serious: No
  Sender: FDA-Public Use
  Company Number: PHEH2003US10475

PATIENT
  Age: 42 Year
  Sex: Female

DRUGS (4)
  1. ELIDEL [Suspect]
     Indication: SEBORRHOEIC DERMATITIS
     Dosage: PRN, TOPICAL
     Route: 061
     Dates: start: 20031111, end: 20031201
  2. ELIDEL [Suspect]
     Indication: SEBORRHOEIC DERMATITIS
     Dosage: PRN, TOPICAL
     Route: 061
     Dates: start: 20040101
  3. NICOMIDE [Concomitant]
  4. MULTIVITAMIN [Concomitant]

REACTIONS (10)
  - ACNE [None]
  - APPLICATION SITE BURNING [None]
  - APPLICATION SITE DRYNESS [None]
  - APPLICATION SITE ERYTHEMA [None]
  - APPLICATION SITE IRRITATION [None]
  - APPLICATION SITE PAPULES [None]
  - APPLICATION SITE PARAESTHESIA [None]
  - APPLICATION SITE PRURITUS [None]
  - CONDITION AGGRAVATED [None]
  - ROSACEA [None]
